FAERS Safety Report 9659487 (Version 3)
Quarter: 2013Q4

REPORT INFORMATION
  Report Type: Report from Study
  Country: HN (occurrence: HN)
  Receive Date: 20131031
  Receipt Date: 20131108
  Transmission Date: 20140711
  Serious: Yes (Death, Life-Threatening, Other)
  Sender: FDA-Public Use
  Company Number: PHHY2013HN122971

PATIENT
  Sex: Female

DRUGS (4)
  1. GLIVEC [Suspect]
     Indication: CHRONIC MYELOID LEUKAEMIA
     Dosage: 400 MG
     Dates: start: 20120917
  2. GLIVEC [Suspect]
     Dosage: 800 MG
  3. GLIVEC [Suspect]
     Dosage: UNK UKN, UNK
  4. PHENOBARBITAL [Concomitant]
     Indication: EPILEPSY
     Dosage: 200 MG, QD
     Route: 048

REACTIONS (7)
  - Respiratory distress [Fatal]
  - Terminal state [Fatal]
  - Splenomegaly [Fatal]
  - Hypercalcaemia [Fatal]
  - Platelet count increased [Fatal]
  - Blast crisis in myelogenous leukaemia [Fatal]
  - Drug resistance [Unknown]
